FAERS Safety Report 12964362 (Version 1)
Quarter: 2016Q4

REPORT INFORMATION
  Report Type: Spontaneous
  Country: US (occurrence: US)
  Receive Date: 20161122
  Receipt Date: 20161122
  Transmission Date: 20170207
  Serious: No
  Sender: FDA-Public Use
  Company Number: US-PFIZER INC-2016537766

PATIENT
  Sex: Female

DRUGS (1)
  1. ZYVOX [Suspect]
     Active Substance: LINEZOLID
     Indication: INFECTION
     Dosage: 600 MG, 2X/DAY
     Dates: start: 20161101

REACTIONS (7)
  - Diarrhoea [Unknown]
  - Dysphonia [Unknown]
  - Nausea [Unknown]
  - Tooth discolouration [Unknown]
  - Tongue discolouration [Unknown]
  - Neuropathy peripheral [Unknown]
  - Condition aggravated [Unknown]
